FAERS Safety Report 5015801-9 (Version None)
Quarter: 2006Q2

REPORT INFORMATION
  Report Type: 
  Country: None (occurrence: None)
  Receive Date: 20060426
  Receipt Date: 20051018
  Transmission Date: 20061013
  Serious: No
  Sender: FDA-Public Use
  Company Number: US154790

PATIENT
  Age: 81 Year
  Sex: Female

DRUGS (5)
  1. SENSIPAR [Suspect]
     Indication: HYPERPARATHYROIDISM SECONDARY
     Dosage: 30 MG, 1 IN 1 DAYS
     Dates: start: 20050901, end: 20050901
  2. SEVELAMER HCL [Concomitant]
  3. SIMVASTATIN [Concomitant]
  4. VALSARTAN [Concomitant]
  5. MULTIVITAMIN [Concomitant]

REACTIONS (1)
  - MUSCLE TWITCHING [None]
